FAERS Safety Report 6758903-9 (Version None)
Quarter: 2010Q2

REPORT INFORMATION
  Report Type: 
  Country: None (occurrence: None)
  Receive Date: 20100607
  Receipt Date: 20100531
  Transmission Date: 20101027
  Serious: Yes (Hospitalization, Other)
  Sender: FDA-Public Use
  Company Number: PHHO2010DE07075

PATIENT
  Sex: Male
  Weight: 141 kg

DRUGS (5)
  1. CERTICAN [Suspect]
     Indication: RENAL TRANSPLANT
     Dosage: UNK
     Route: 048
     Dates: start: 20090730, end: 20091106
  2. CERTICAN [Suspect]
     Dosage: 1.5 MG, BID
     Route: 048
     Dates: start: 20091107, end: 20100515
  3. SIMULECT [Concomitant]
     Indication: RENAL TRANSPLANT
     Dosage: UNK
  4. MYFORTIC [Concomitant]
     Indication: RENAL TRANSPLANT
     Dosage: UNK
  5. SANDIMMUNE [Concomitant]
     Indication: RENAL TRANSPLANT

REACTIONS (6)
  - ARTERIOSCLEROSIS [None]
  - ARTERIOSCLEROTIC GANGRENE [None]
  - CONCOMITANT DISEASE PROGRESSION [None]
  - DIABETES MELLITUS [None]
  - NECROSIS [None]
  - VASCULAR GRAFT [None]
